FAERS Safety Report 6444711-5 (Version None)
Quarter: 2009Q4

REPORT INFORMATION
  Report Type: 
  Country: None (occurrence: None)
  Receive Date: 20091118
  Receipt Date: 20091113
  Transmission Date: 20100525
  Serious: Yes (Hospitalization)
  Sender: FDA-Public Use
  Company Number: A0812600A

PATIENT
  Age: 78 Year
  Sex: Female

DRUGS (16)
  1. ADVAIR DISKUS 100/50 [Suspect]
     Indication: PNEUMONIA
     Dosage: 2PUFF AS REQUIRED
     Route: 055
     Dates: start: 20050101
  2. ASACOL [Concomitant]
  3. UNKNOWN [Concomitant]
  4. UNKNOWN [Concomitant]
  5. LISINOPRIL [Concomitant]
  6. IMDUR [Concomitant]
  7. NIFEDIPINE [Concomitant]
  8. NEXIUM [Concomitant]
  9. TRICOR [Concomitant]
  10. CALCIUM [Concomitant]
  11. MAGNESIUM [Concomitant]
  12. MULTI-VITAMIN [Concomitant]
  13. VITAMIN E [Concomitant]
  14. ASCORBIC ACID [Concomitant]
  15. VITAMIN D [Concomitant]
  16. FISH OIL [Concomitant]

REACTIONS (4)
  - ANAEMIA [None]
  - DRUG ADMINISTRATION ERROR [None]
  - PERICARDIAL EFFUSION [None]
  - PNEUMONIA [None]
